FAERS Safety Report 14585144 (Version 1)
Quarter: 2018Q1

REPORT INFORMATION
  Report Type: Spontaneous
  Country: HR (occurrence: HR)
  Receive Date: 20180301
  Receipt Date: 20180301
  Transmission Date: 20180509
  Serious: Yes (Death, Hospitalization)
  Sender: FDA-Public Use
  Company Number: HR-B.I. PHARMACEUTICALS,INC./RIDGEFIELD-2018-12-000746

PATIENT
  Age: 88 Year
  Sex: Female

DRUGS (10)
  1. TYREZ [Concomitant]
     Indication: CARDIOMYOPATHY
     Route: 048
     Dates: start: 201702, end: 20180209
  2. ARTAS [Concomitant]
     Indication: MYOCARDIAL INFARCTION
     Route: 048
     Dates: start: 201702, end: 20180209
  3. ARES [Concomitant]
     Active Substance: RABEPRAZOLE SODIUM
     Indication: PRODUCT USED FOR UNKNOWN INDICATION
     Route: 048
     Dates: start: 201702, end: 20180209
  4. CORDARONE [Concomitant]
     Active Substance: AMIODARONE HYDROCHLORIDE
     Indication: ATRIAL FIBRILLATION
     Route: 048
     Dates: start: 201702
  5. WALZERA [Concomitant]
     Active Substance: VALSARTAN
     Indication: MYOCARDIAL INFARCTION
     Route: 048
     Dates: start: 201702, end: 20180209
  6. PRADAXA [Suspect]
     Active Substance: DABIGATRAN ETEXILATE MESYLATE
     Indication: ATRIAL FIBRILLATION
     Route: 048
     Dates: start: 201606, end: 20180209
  7. KALINOR (POTASSIUM CHLORIDE) [Concomitant]
     Active Substance: POTASSIUM CHLORIDE
     Indication: CARDIOMYOPATHY
     Dosage: 1DF= 2,17 GPOTASSIUM CITRATE + 2,00 GPOTASSIUM BICARBONATE + 2,057 G
     Route: 048
     Dates: end: 20180209
  8. TEOTARD [Concomitant]
     Active Substance: THEOPHYLLINE ANHYDROUS
     Indication: CHRONIC OBSTRUCTIVE PULMONARY DISEASE
     Route: 048
     Dates: end: 20180209
  9. VOLTAREN [Concomitant]
     Active Substance: DICLOFENAC SODIUM
     Indication: CONTUSION
     Route: 030
     Dates: start: 20180209, end: 20180209
  10. FURSEMID [Concomitant]
     Active Substance: FUROSEMIDE
     Indication: CARDIOMYOPATHY
     Route: 048
     Dates: end: 20180209

REACTIONS (8)
  - Toxicity to various agents [Fatal]
  - Renal failure [Fatal]
  - Hypotension [Fatal]
  - Rectal haemorrhage [Fatal]
  - Altered state of consciousness [Fatal]
  - Anuria [Fatal]
  - Haematochezia [Fatal]
  - Diarrhoea [Fatal]

NARRATIVE: CASE EVENT DATE: 20180209
